FAERS Safety Report 8962705 (Version 1)
Quarter: 2012Q4

REPORT INFORMATION
  Report Type: Spontaneous
  Country: CA (occurrence: None)
  Receive Date: 20121206
  Receipt Date: 20121206
  Transmission Date: 20130627
  Serious: Yes (Other)
  Sender: FDA-Public Use
  Company Number: 2012AP000696

PATIENT
  Age: 69 Year
  Sex: Male

DRUGS (2)
  1. OLANZAPINE (OLANZAPINE) [Suspect]
     Indication: SEXUALLY INAPPROPRIATE BEHAVIOUR
  2. OLANZAPINE (OLANZAPINE) [Suspect]
     Indication: OFF LABEL USE

REACTIONS (2)
  - Neuroleptic malignant syndrome [None]
  - Off label use [None]
